FAERS Safety Report 5339548-4 (Version None)
Quarter: 2007Q2

REPORT INFORMATION
  Report Type: 
  Country: None (occurrence: None)
  Receive Date: 20070405
  Receipt Date: 20061207
  Transmission Date: 20071010
  Serious: No
  Sender: FDA-Public Use
  Company Number: US200611005023

PATIENT
  Age: 69 Year
  Sex: Male

DRUGS (5)
  1. CYMBALTA [Suspect]
     Dosage: 60 MG, DAILY (1/D), ORAL
     Route: 048
     Dates: start: 20061127
  2. FINASTERIN (FINASTERIDE) [Concomitant]
  3. IBUPROFEN [Concomitant]
  4. TERAZOSIN HCL [Concomitant]
  5. GABAPENTIN [Concomitant]

REACTIONS (6)
  - BRUXISM [None]
  - FEELING ABNORMAL [None]
  - INSOMNIA [None]
  - RESTLESSNESS [None]
  - SLEEP DISORDER [None]
  - TRISMUS [None]
